FAERS Safety Report 13635501 (Version 7)
Quarter: 2018Q1

REPORT INFORMATION
  Report Type: Spontaneous
  Country: US (occurrence: US)
  Receive Date: 20170609
  Receipt Date: 20180314
  Transmission Date: 20180508
  Serious: No
  Sender: FDA-Public Use
  Company Number: US-PFIZER INC-2017250254

PATIENT
  Age: 62 Year
  Sex: Male
  Weight: 92 kg

DRUGS (5)
  1. BENADRYL [Concomitant]
     Active Substance: DIPHENHYDRAMINE HYDROCHLORIDE
     Dosage: UNK
  2. VITAMIN D [Concomitant]
     Active Substance: CHOLECALCIFEROL
     Dosage: UNK
  3. SUTENT [Suspect]
     Active Substance: SUNITINIB MALATE
     Indication: GASTROINTESTINAL STROMAL TUMOUR
     Dosage: 37.5 MG, UNK
     Dates: start: 20170505, end: 2017
  4. PEPCID [Concomitant]
     Active Substance: FAMOTIDINE
     Dosage: UNK
  5. SUTENT [Suspect]
     Active Substance: SUNITINIB MALATE
     Indication: NEOPLASM
     Dosage: 37.5 MG, CYCLIC (DAILY, 28 DAYS ON AND 7 DAYS OFF)
     Dates: start: 20170511

REACTIONS (10)
  - Myalgia [Recovering/Resolving]
  - Skin irritation [Recovered/Resolved]
  - Odynophagia [Recovering/Resolving]
  - Blister [Recovering/Resolving]
  - Skin disorder [Recovered/Resolved]
  - Fatigue [Not Recovered/Not Resolved]
  - Oesophageal pain [Recovering/Resolving]
  - Oral pain [Recovering/Resolving]
  - Pain in extremity [Recovering/Resolving]
  - Diarrhoea [Unknown]

NARRATIVE: CASE EVENT DATE: 2017
